FAERS Safety Report 5587146-X (Version None)
Quarter: 2008Q1

REPORT INFORMATION
  Report Type: 
  Country: None (occurrence: None)
  Receive Date: 20080107
  Receipt Date: 20071221
  Transmission Date: 20080703
  Serious: Yes (Hospitalization)
  Sender: FDA-Public Use
  Company Number: 430007M07FRA

PATIENT
  Age: 61 Year
  Sex: Female

DRUGS (4)
  1. NOVANTRONE [Suspect]
     Indication: MULTIPLE SCLEROSIS
     Dates: start: 20020901, end: 20041201
  2. BETAFERON (INTERFERON BETA) [Suspect]
     Indication: MULTIPLE SCLEROSIS
     Dates: start: 19980101, end: 19990101
  3. CYCLOPHOSPHAMIDE [Suspect]
     Indication: MULTIPLE SCLEROSIS
     Dates: start: 19990101
  4. METHOTREXATE [Suspect]
     Indication: MULTIPLE SCLEROSIS
     Dosage: 7.5 MG, 1 IN 1 WEEKS
     Dates: start: 20050101, end: 20061101

REACTIONS (1)
  - ACUTE MYELOID LEUKAEMIA [None]
